FAERS Safety Report 9289911 (Version 1)
Quarter: 2013Q2

REPORT INFORMATION
  Report Type: Report from Study
  Country: ZA (occurrence: ZA)
  Receive Date: 20130515
  Receipt Date: 20130515
  Transmission Date: 20140414
  Serious: Yes (Hospitalization)
  Sender: FDA-Public Use
  Company Number: ZA-ROCHE-1224367

PATIENT
  Age: 77 Year
  Sex: Female

DRUGS (4)
  1. MIRCERA [Suspect]
     Indication: PRODUCT USED FOR UNKNOWN INDICATION
     Dosage: MONTHLY
     Route: 058
     Dates: start: 200909
  2. MIRCERA [Suspect]
     Dosage: MONTHLY
     Route: 058
     Dates: start: 201104
  3. MIRCERA [Suspect]
     Dosage: MONTHLY
     Route: 058
     Dates: start: 201204
  4. MIRCERA [Suspect]
     Dosage: MONTHLY
     Route: 058
     Dates: start: 201301

REACTIONS (1)
  - Pleural effusion [Recovered/Resolved]
